FAERS Safety Report 14814881 (Version 1)
Quarter: 2018Q2

REPORT INFORMATION
  Report Type: Spontaneous
  Country: US (occurrence: US)
  Receive Date: 20180417
  Receipt Date: 20180417
  Transmission Date: 20180711
  Serious: Yes (Other)
  Sender: FDA-Public Use
  Company Number: None

PATIENT
  Age: 36 Year
  Sex: Female
  Weight: 99.79 kg

DRUGS (6)
  1. CHLORHEXIDINE GLUCONATE 0.12% ORAL RINSE USP XTTRIUM LABORATORIES [Suspect]
     Active Substance: CHLORHEXIDINE GLUCONATE
     Indication: TOOTH EXTRACTION
     Dosage: OTHER ROUTE:SWISHED IN MOUTH?
     Dates: start: 20180316, end: 20180318
  2. VITAMIN C [Concomitant]
     Active Substance: ASCORBIC ACID
  3. HYDROCODONE [Concomitant]
     Active Substance: HYDROCODONE
  4. MAGNESIUM [Concomitant]
     Active Substance: MAGNESIUM
  5. MULTI VITAMIN [Concomitant]
     Active Substance: VITAMINS
  6. PROBIOTICS [Concomitant]
     Active Substance: PROBIOTICS NOS

REACTIONS (3)
  - Dysgeusia [None]
  - Breath odour [None]
  - Tongue discomfort [None]

NARRATIVE: CASE EVENT DATE: 20180316
